FAERS Safety Report 17239692 (Version 9)
Quarter: 2020Q3

REPORT INFORMATION
  Report Type: Spontaneous
  Country: US (occurrence: US)
  Receive Date: 20200106
  Receipt Date: 20200821
  Transmission Date: 20201102
  Serious: Yes (Hospitalization)
  Sender: FDA-Public Use
  Company Number: US-ACTELION-A-US2020-200185

PATIENT
  Sex: Male
  Weight: 70.75 kg

DRUGS (5)
  1. VELETRI [Suspect]
     Active Substance: EPOPROSTENOL
     Indication: PULMONARY ARTERIAL HYPERTENSION
     Dosage: 38 NG/KG, PER MIN
     Route: 042
  2. VELETRI [Suspect]
     Active Substance: EPOPROSTENOL
     Dosage: 40 UNK
     Route: 042
  3. SILDENAFIL CITRATE. [Concomitant]
     Active Substance: SILDENAFIL CITRATE
  4. TRACLEER [Suspect]
     Active Substance: BOSENTAN
     Indication: PULMONARY ARTERIAL HYPERTENSION
     Dosage: 125 MG, BID
     Route: 048
  5. WARFARIN [Concomitant]
     Active Substance: WARFARIN

REACTIONS (9)
  - Pulmonary arterial hypertension [Unknown]
  - Feeding disorder [Unknown]
  - Chemotherapy [Unknown]
  - Vomiting [Unknown]
  - Dyspnoea exertional [Unknown]
  - Nausea [Unknown]
  - Diarrhoea [Unknown]
  - Colon operation [Unknown]
  - Weight decreased [Unknown]
